FAERS Safety Report 9146321 (Version 1)
Quarter: 2013Q1

REPORT INFORMATION
  Report Type: Spontaneous
  Country: US (occurrence: US)
  Receive Date: 20130307
  Receipt Date: 20130307
  Transmission Date: 20140127
  Serious: Yes (Other)
  Sender: FDA-Public Use
  Company Number: US-PFIZER INC-2013074696

PATIENT
  Sex: Female
  Weight: 53.52 kg

DRUGS (1)
  1. ADVIL [Suspect]
     Indication: PAIN
     Dosage: 2 DF, AS NEEDED
     Route: 048
     Dates: start: 2008

REACTIONS (1)
  - Coeliac disease [Unknown]
